FAERS Safety Report 6202044-6 (Version None)
Quarter: 2009Q2

REPORT INFORMATION
  Report Type: 
  Country: None (occurrence: None)
  Receive Date: 20090526
  Receipt Date: 20090518
  Transmission Date: 20091009
  Serious: Yes (Other)
  Sender: FDA-Public Use
  Company Number: B0566925A

PATIENT
  Sex: Male
  Weight: 51 kg

DRUGS (5)
  1. RELENZA [Suspect]
     Dosage: 10MG TWICE PER DAY
     Route: 055
     Dates: start: 20090227, end: 20090303
  2. MUCODYNE [Concomitant]
     Indication: INFLUENZA
     Dosage: 750MG PER DAY
     Route: 048
     Dates: start: 20090227
  3. ASVERIN [Concomitant]
     Indication: INFLUENZA
     Dosage: 60MG PER DAY
     Route: 048
     Dates: start: 20090227
  4. PREDONINE [Concomitant]
     Indication: NEPHROTIC SYNDROME
     Dosage: 10MG PER DAY
     Route: 048
  5. NEORAL [Concomitant]
     Indication: NEPHROTIC SYNDROME
     Dosage: 150MG PER DAY
     Route: 048

REACTIONS (4)
  - ABNORMAL BEHAVIOUR [None]
  - AFFECT LABILITY [None]
  - CRYING [None]
  - DEPRESSED LEVEL OF CONSCIOUSNESS [None]
